FAERS Safety Report 6502056-9 (Version None)
Quarter: 2009Q4

REPORT INFORMATION
  Report Type: 
  Country: None (occurrence: None)
  Receive Date: 20091216
  Receipt Date: 20091210
  Transmission Date: 20100525
  Serious: Yes (Death)
  Sender: FDA-Public Use
  Company Number: JP-MERCK-0912USA01645

PATIENT
  Age: 89 Year
  Sex: Male

DRUGS (18)
  1. COZAAR [Suspect]
     Indication: HYPERTENSION
     Route: 048
     Dates: start: 20091112, end: 20091203
  2. ASPIRIN [Concomitant]
     Dosage: AFTER BREAKFAST
     Route: 048
     Dates: start: 20091112, end: 20091203
  3. LENDORMIN [Concomitant]
     Dosage: BEFORE IT SLEEPS
     Route: 048
     Dates: start: 20091112, end: 20091203
  4. PARIET [Concomitant]
     Dosage: AFTER SUPPER
     Route: 048
     Dates: start: 20091112, end: 20091203
  5. MYONAL [Concomitant]
     Dosage: AFTER MEAL
     Route: 048
     Dates: start: 20091112, end: 20091203
  6. MUCOSTA [Concomitant]
     Dosage: AFTER MEAL
     Route: 048
     Dates: start: 20091112, end: 20091203
  7. PL-GRANULES [Concomitant]
     Dosage: AFTER MEAL
     Route: 048
     Dates: start: 20091112, end: 20091126
  8. DASEN [Concomitant]
     Dosage: AFTER MEAL
     Route: 048
     Dates: start: 20091112, end: 20091126
  9. MEFENAMIC ACID [Concomitant]
     Dosage: MEDICATION TO BE TAKEN AS NEEDED, AT HEADACHE
     Route: 048
     Dates: start: 20091112
  10. SELTOUCH [Concomitant]
     Route: 061
     Dates: start: 20091112
  11. LOXONIN [Concomitant]
     Dosage: MEDICATION TO BE TAKEN AS NEEDED, AT BACKACHE OR MUSCLE PAIN
     Route: 048
     Dates: start: 20091112
  12. AMLODIN OD [Concomitant]
     Dosage: MEDICATION TO BE TAKEN AS NEEDED, AT BLOOD PRESSURE OVER 180, WITHIN ONCE A DAY
     Route: 048
     Dates: start: 20091112
  13. THEO-DUR [Concomitant]
     Dosage: AFTER BREAKFAST AND SUPPER
     Route: 048
     Dates: start: 20091112, end: 20091203
  14. MUCOSOLVAN [Concomitant]
     Dosage: AFTER MEAL
     Route: 048
     Dates: start: 20091112, end: 20091203
  15. MUCODYNE [Concomitant]
     Dosage: AFTER MEAL
     Route: 048
     Dates: start: 20091112, end: 20091203
  16. HOKUNALIN [Concomitant]
     Route: 061
     Dates: start: 20091112, end: 20091203
  17. SPIRIVA [Concomitant]
     Route: 055
     Dates: start: 20081112, end: 20091203
  18. CRAVIT [Concomitant]
     Dosage: AFTER BREAKFAST, DISCONTINUE TO TAKE AFTER SYMPTOM WAS RECOVERED
     Route: 048
     Dates: start: 20091112

REACTIONS (3)
  - ACUTE MYOCARDIAL INFARCTION [None]
  - ARRHYTHMIA [None]
  - CARDIAC FAILURE CONGESTIVE [None]
